FAERS Safety Report 13644150 (Version 9)
Quarter: 2018Q1

REPORT INFORMATION
  Report Type: Report from Study
  Country: US (occurrence: US)
  Receive Date: 20170612
  Receipt Date: 20180323
  Transmission Date: 20180508
  Serious: Yes (Hospitalization, Other)
  Sender: FDA-Public Use
  Company Number: US-ACTELION-A-NJ2016-143600

PATIENT
  Age: 64 Year
  Sex: Male
  Weight: 100.23 kg

DRUGS (9)
  1. UPTRAVI [Suspect]
     Active Substance: SELEXIPAG
     Indication: PULMONARY ARTERIAL HYPERTENSION
     Dosage: 1200 MCG, BID
     Route: 048
  2. UPTRAVI [Suspect]
     Active Substance: SELEXIPAG
     Dosage: 800 MCG, BID
     Route: 048
     Dates: start: 20160816
  3. ADEMPAS [Concomitant]
     Active Substance: RIOCIGUAT
     Dosage: 1 MG, UNK
  4. ADEMPAS [Concomitant]
     Active Substance: RIOCIGUAT
     Dosage: 0.5 MG, TID
     Route: 048
  5. UPTRAVI [Suspect]
     Active Substance: SELEXIPAG
     Dosage: 1000 MCG, BID
     Route: 048
     Dates: start: 20160816
  6. ADEMPAS [Concomitant]
     Active Substance: RIOCIGUAT
     Dosage: 1.5 MG, TID
     Route: 048
  7. UPTRAVI [Suspect]
     Active Substance: SELEXIPAG
     Dosage: 1400 MCG, BID
     Route: 048
  8. UPTRAVI [Suspect]
     Active Substance: SELEXIPAG
     Dosage: 600 MCG, BID
     Route: 048
  9. ADEMPAS [Concomitant]
     Active Substance: RIOCIGUAT
     Dosage: UNK
     Route: 065

REACTIONS (49)
  - Erythema [Unknown]
  - Head discomfort [Unknown]
  - Myalgia [Unknown]
  - Haemoglobin decreased [Unknown]
  - Neutropenia [Unknown]
  - Mouth haemorrhage [Unknown]
  - Diarrhoea [Unknown]
  - Gastrointestinal disorder [Recovering/Resolving]
  - Diverticulitis [Unknown]
  - Vocal cord operation [Unknown]
  - Anaemia [Unknown]
  - Dyspnoea [Recovering/Resolving]
  - Therapy non-responder [Unknown]
  - Leukopenia [Unknown]
  - Peripheral swelling [Unknown]
  - Fatigue [Unknown]
  - Blood pressure diastolic decreased [Unknown]
  - Nausea [Unknown]
  - Colitis [Unknown]
  - Hepatic cancer [Unknown]
  - Pain in extremity [Unknown]
  - Pruritus [Unknown]
  - Pneumonia [Unknown]
  - Flatulence [Unknown]
  - Platelet count decreased [Unknown]
  - Hepatic cirrhosis [Unknown]
  - Sepsis [Unknown]
  - Splenomegaly [Unknown]
  - Food poisoning [Unknown]
  - Hypotension [Unknown]
  - Dyspepsia [Recovering/Resolving]
  - Oedema peripheral [Unknown]
  - Haemorrhage [Unknown]
  - Enteritis infectious [Recovering/Resolving]
  - Abdominal distension [Unknown]
  - Arrhythmia [Unknown]
  - Pain in jaw [Unknown]
  - Limb discomfort [Unknown]
  - Constipation [Unknown]
  - Headache [Unknown]
  - Abdominal tenderness [Unknown]
  - Dysphonia [Unknown]
  - Dyspnoea exertional [Unknown]
  - Gait disturbance [Unknown]
  - White blood cell count decreased [Unknown]
  - Liver disorder [Unknown]
  - Blood albumin increased [Unknown]
  - Insomnia [Unknown]
  - Gastrointestinal infection [Unknown]

NARRATIVE: CASE EVENT DATE: 2016
